FAERS Safety Report 9867861 (Version 2)
Quarter: 2014Q1

REPORT INFORMATION
  Report Type: Spontaneous
  Country: GB (occurrence: GB)
  Receive Date: 20140204
  Receipt Date: 20140310
  Transmission Date: 20141002
  Serious: Yes (Other)
  Sender: FDA-Public Use
  Company Number: PHFR2014GB001129

PATIENT
  Age: 56 Year
  Sex: Male

DRUGS (2)
  1. SANDOSTATIN LAR [Suspect]
     Dosage: UNK UKN, UNK
  2. SANDOSTATIN (OCTREOTIDE ACETATE) [Suspect]
     Dosage: 50 UG, UNK
     Route: 058
     Dates: start: 201311

REACTIONS (2)
  - Adverse reaction [Unknown]
  - Cholelithiasis [Recovering/Resolving]
